FAERS Safety Report 5781903-2 (Version None)
Quarter: 2008Q2

REPORT INFORMATION
  Report Type: 
  Country: None (occurrence: None)
  Receive Date: 20080623
  Receipt Date: 20080620
  Transmission Date: 20081010
  Serious: Yes (Other)
  Sender: FDA-Public Use
  Company Number: A0734330A

PATIENT
  Sex: Female

DRUGS (3)
  1. AROPAX [Suspect]
     Indication: DEPRESSION
     Dosage: 20MG PER DAY
     Route: 048
     Dates: start: 20080301, end: 20080101
  2. LEVODOPA [Concomitant]
  3. CHEMOTHERAPY [Concomitant]

REACTIONS (2)
  - INSOMNIA [None]
  - LYMPHOMA [None]
